FAERS Safety Report 6987644-8 (Version None)
Quarter: 2010Q3

REPORT INFORMATION
  Report Type: 
  Country: None (occurrence: None)
  Receive Date: 20100916
  Receipt Date: 20100824
  Transmission Date: 20110219
  Serious: Yes (Hospitalization)
  Sender: FDA-Public Use
  Company Number: RU-CELGENEUS-251-C5013-10081273

PATIENT
  Sex: Male
  Weight: 100 kg

DRUGS (9)
  1. CC-5013 [Suspect]
     Indication: MANTLE CELL LYMPHOMA
     Route: 048
     Dates: start: 20100727, end: 20100813
  2. CORDARONE [Concomitant]
     Indication: ARRHYTHMIA PROPHYLAXIS
     Route: 048
     Dates: start: 20070101
  3. ASPIRIN [Concomitant]
     Indication: THROMBOSIS PROPHYLAXIS
     Route: 048
     Dates: start: 20070101
  4. CONCOR [Concomitant]
     Indication: ARRHYTHMIA PROPHYLAXIS
     Route: 048
     Dates: start: 20070101
  5. ALLOPURINOL [Concomitant]
     Indication: PROPHYLAXIS
     Route: 048
     Dates: start: 20100727
  6. CLOPIDOGREL [Concomitant]
     Indication: THROMBOSIS PROPHYLAXIS
     Route: 048
     Dates: start: 20070101
  7. PIRIBEDIL [Concomitant]
     Indication: PARKINSON'S DISEASE
     Route: 048
     Dates: start: 20070101
  8. EUTHYROX [Concomitant]
     Indication: HYPOTHYROIDISM
     Route: 048
     Dates: start: 20070101
  9. CRESTOR [Concomitant]
     Indication: PROPHYLAXIS
     Route: 048
     Dates: start: 20070101

REACTIONS (1)
  - PHARYNGEAL INFLAMMATION [None]
